FAERS Safety Report 4638089-7 (Version None)
Quarter: 2005Q2

REPORT INFORMATION
  Report Type: 
  Country: None (occurrence: None)
  Receive Date: 20050415
  Receipt Date: 20050405
  Transmission Date: 20051028
  Serious: Yes (Other)
  Sender: FDA-Public Use
  Company Number: 2005055636

PATIENT
  Age: 46 Year
  Sex: Female
  Weight: 149.2334 kg

DRUGS (6)
  1. CELEBREX [Suspect]
     Indication: PAIN IN EXTREMITY
     Dosage: 1 IN 1 D, ORAL
     Route: 048
     Dates: start: 20030101, end: 20040201
  2. FLUOXETINE HCL [Suspect]
     Indication: DEPRESSION
     Dosage: 1 IN 1 D, ORAL
     Route: 048
     Dates: start: 20020101, end: 20031101
  3. FLUOXETINE HCL [Suspect]
     Indication: WEIGHT DECREASED
     Dosage: 1 IN 1 D, ORAL
     Route: 048
     Dates: start: 20020101, end: 20031101
  4. VITAMINS (VITAMINS) [Concomitant]
  5. MINERALS NOS (MINERALS  NOS) [Concomitant]
  6. DIPHENHYDRAMINE HCL [Concomitant]

REACTIONS (16)
  - AMENORRHOEA [None]
  - DECREASED ACTIVITY [None]
  - DYSMENORRHOEA [None]
  - HAEMORRHAGE [None]
  - HYPERTENSION [None]
  - INSOMNIA [None]
  - INTERVERTEBRAL DISC DEGENERATION [None]
  - JOINT INJURY [None]
  - MENOPAUSE [None]
  - MENSTRUAL DISORDER [None]
  - MUSCLE SPASMS [None]
  - OSTEOARTHRITIS [None]
  - PAIN IN EXTREMITY [None]
  - UNEVALUABLE EVENT [None]
  - UTERINE LEIOMYOMA [None]
  - VEIN PAIN [None]
